FAERS Safety Report 23975393 (Version 3)
Quarter: 2024Q3

REPORT INFORMATION
  Report Type: Spontaneous
  Country: RO (occurrence: RO)
  Receive Date: 20240614
  Receipt Date: 20240709
  Transmission Date: 20241017
  Serious: Yes (Other)
  Sender: SAMSUNG BIOEPIS
  Company Number: RO-SAMSUNG BIOEPIS-SB-2024-17088

PATIENT
  Age: 55 Year
  Sex: Female

DRUGS (1)
  1. IMRALDI [Suspect]
     Active Substance: ADALIMUMAB
     Indication: Crohn^s disease
     Dosage: 40 MG/0.8 ML
     Route: 058
     Dates: start: 20230830, end: 20240522

REACTIONS (5)
  - Eyelid ptosis [Not Recovered/Not Resolved]
  - Empty sella syndrome [Not Recovered/Not Resolved]
  - Intervertebral disc disorder [Not Recovered/Not Resolved]
  - Demyelination [Not Recovered/Not Resolved]
  - Intentional product use issue [Unknown]
